FAERS Safety Report 6974759-3 (Version None)
Quarter: 2010Q3

REPORT INFORMATION
  Report Type: 
  Country: None (occurrence: None)
  Receive Date: 20100909
  Receipt Date: 20081212
  Transmission Date: 20110219
  Serious: No
  Sender: FDA-Public Use
  Company Number: US-WYE-H07245208

PATIENT
  Sex: Female

DRUGS (2)
  1. PRISTIQ [Suspect]
     Indication: MAJOR DEPRESSION
     Dosage: 50 MG EVERY 1 TOT
     Route: 048
     Dates: start: 20081209, end: 20081209
  2. ALPRAZOLAM [Concomitant]
     Indication: ANXIETY
     Route: 048
     Dates: start: 20060101

REACTIONS (8)
  - ANXIETY [None]
  - CHILLS [None]
  - CONDITION AGGRAVATED [None]
  - DIARRHOEA [None]
  - DIZZINESS [None]
  - HALLUCINATION, VISUAL [None]
  - PYREXIA [None]
  - VOMITING [None]
